FAERS Safety Report 24955778 (Version 1)
Quarter: 2025Q1

REPORT INFORMATION
  Report Type: Spontaneous
  Country: US (occurrence: US)
  Receive Date: 20250211
  Receipt Date: 20250211
  Transmission Date: 20250408
  Serious: No
  Sender: JUBILANT
  Company Number: US-JUBILANT CADISTA PHARMACEUTICALS-2025US000097

PATIENT

DRUGS (2)
  1. RISPERIDONE [Suspect]
     Active Substance: RISPERIDONE
     Indication: Aggression
     Dosage: 0.5 MG, ONCE PER DAY
     Route: 048
  2. RISPERIDONE [Suspect]
     Active Substance: RISPERIDONE
     Indication: Autism spectrum disorder
     Dosage: 1 MG, ONCE PER DAY
     Route: 048

REACTIONS (8)
  - Aggression [Unknown]
  - Sadism [Unknown]
  - Mood swings [Unknown]
  - Movement disorder [Unknown]
  - Hyperacusis [Unknown]
  - Emotional disorder [Unknown]
  - Urinary incontinence [Unknown]
  - Anal incontinence [Unknown]
